FAERS Safety Report 4589853-4 (Version None)
Quarter: 2005Q1

REPORT INFORMATION
  Report Type: 
  Country: None (occurrence: None)
  Receive Date: 20050223
  Receipt Date: 20050119
  Transmission Date: 20050727
  Serious: Yes (Hospitalization)
  Sender: FDA-Public Use
  Company Number: NL-MERCK-0501USA03523

PATIENT
  Age: 81 Year
  Sex: Female

DRUGS (6)
  1. HYDRODIURIL [Suspect]
     Route: 048
  2. BUMETANIDE [Suspect]
     Route: 065
  3. BUMETANIDE [Suspect]
     Route: 065
  4. TEMAZEPAM [Concomitant]
     Route: 065
  5. LACTULOSE [Concomitant]
     Route: 065
  6. [THERAPY UNSPECIFIED] [Suspect]
     Route: 065

REACTIONS (4)
  - DELIRIUM [None]
  - HYPOKALAEMIA [None]
  - HYPONATRAEMIA [None]
  - MEDICATION ERROR [None]
